FAERS Safety Report 6034573-2 (Version None)
Quarter: 2009Q1

REPORT INFORMATION
  Report Type: 
  Country: None (occurrence: None)
  Receive Date: 20090108
  Receipt Date: 20081223
  Transmission Date: 20090719
  Serious: Yes (Death)
  Sender: FDA-Public Use
  Company Number: 8040751

PATIENT
  Age: 40 Year
  Sex: Male

DRUGS (7)
  1. ACETAMINOPHEN AND HYDROCODONE BITARTRATE [Suspect]
     Dates: end: 20070101
  2. VERAPAMIL [Suspect]
     Dates: end: 20070101
  3. COCAINE [Suspect]
     Dates: end: 20070101
  4. ETHANOL [Suspect]
     Dates: end: 20070101
  5. POTASSIUM CHLORIDE [Suspect]
     Dates: end: 20070101
  6. DIURETICS [Suspect]
     Dates: end: 20070101
  7. FENTANYL [Suspect]
     Dates: end: 20070101

REACTIONS (11)
  - ACTIVATED PARTIAL THROMBOPLASTIN TIME PROLONGED [None]
  - ANION GAP INCREASED [None]
  - BLOOD BICARBONATE INCREASED [None]
  - BLOOD CREATINE PHOSPHOKINASE INCREASED [None]
  - BLOOD CREATININE INCREASED [None]
  - BLOOD GLUCOSE INCREASED [None]
  - CARDIO-RESPIRATORY ARREST [None]
  - COMPLETED SUICIDE [None]
  - INTENTIONAL OVERDOSE [None]
  - UNRESPONSIVE TO STIMULI [None]
  - WHITE BLOOD CELL COUNT INCREASED [None]
